FAERS Safety Report 7450961-1 (Version None)
Quarter: 2011Q2

REPORT INFORMATION
  Report Type: 
  Country: None (occurrence: None)
  Receive Date: 20110429
  Receipt Date: 20110429
  Transmission Date: 20111010
  Serious: Yes (Disabling)
  Sender: FDA-Public Use
  Company Number: None

PATIENT
  Sex: Male
  Weight: 98 kg

DRUGS (12)
  1. FENTANYL [Suspect]
     Indication: SEDATION
     Dosage: 50 MCG EVERY HOUR IV DRIP
     Route: 041
     Dates: start: 20110321, end: 20110321
  2. HEPARIN [Concomitant]
  3. ALBUTEROL SULFATE [Concomitant]
  4. ASPIRIN [Concomitant]
  5. PANTOPRAZOLE [Concomitant]
  6. ACETAMINOPHEN [Concomitant]
  7. GUAIFENESIN [Concomitant]
  8. FLUTICASONE-SALMETEROL [Concomitant]
  9. IPRATROPIUM BROMIDE [Concomitant]
  10. OSELTAMIVIR [Concomitant]
  11. ZYVOX [Suspect]
     Indication: PNEUMONIA
     Dosage: 600 MG EVERY 12 HOURS IV BOLUS
     Route: 040
     Dates: start: 20110315, end: 20110321
  12. LISINOPRIL [Concomitant]

REACTIONS (2)
  - DRUG INTERACTION [None]
  - BLOOD PRESSURE DECREASED [None]
